FAERS Safety Report 16795699 (Version 1)
Quarter: 2019Q3

REPORT INFORMATION
  Report Type: Spontaneous
  Country: US (occurrence: ZA)
  Receive Date: 20190911
  Receipt Date: 20190911
  Transmission Date: 20191005
  Serious: Yes (Death, Other)
  Sender: FDA-Public Use
  Company Number: ZA-STI PHARMA LLC-2074323

PATIENT
  Age: 42 Year
  Sex: Male

DRUGS (12)
  1. CLOFAZIMINE [Suspect]
     Active Substance: CLOFAZIMINE
     Dates: start: 20190522
  2. LEVOFLOXACIN. [Suspect]
     Active Substance: LEVOFLOXACIN
     Dates: start: 20190522
  3. AMINOSALICYLIC ACID [Suspect]
     Active Substance: AMINOSALICYLIC ACID
     Dates: start: 20190601
  4. TERIZIDONE [Suspect]
     Active Substance: TERIZIDONE
     Dates: start: 20190601
  5. EPIRUBICIN HYDROCHLORIDE. [Suspect]
     Active Substance: EPIRUBICIN HYDROCHLORIDE
  6. BEDAQUILINE [Suspect]
     Active Substance: BEDAQUILINE
     Dates: start: 20190522
  7. LINEZOLID. [Suspect]
     Active Substance: LINEZOLID
     Dates: start: 20190522
  8. ISONIAZID. [Suspect]
     Active Substance: ISONIAZID
     Dates: start: 20190522
  9. ETHAMBUTOL HYDROCHLORIDE. [Suspect]
     Active Substance: ETHAMBUTOL HYDROCHLORIDE
     Indication: TUBERCULOSIS
     Dates: start: 20190522
  10. DELAMINID [Suspect]
     Active Substance: DELAMANID
     Dates: start: 20190712
  11. PYRAZINAMIDE. [Suspect]
     Active Substance: PYRAZINAMIDE
     Dates: start: 20190522
  12. MEROPENEM. [Suspect]
     Active Substance: MEROPENEM
     Dates: start: 20190712

REACTIONS (4)
  - Cerebrovascular arteriovenous malformation [Fatal]
  - Tuberculosis [Fatal]
  - Cerebrovascular accident [Fatal]
  - HIV infection [Fatal]

NARRATIVE: CASE EVENT DATE: 20190624
